FAERS Safety Report 5938363-8 (Version None)
Quarter: 2008Q4

REPORT INFORMATION
  Report Type: 
  Country: None (occurrence: None)
  Receive Date: 20081103
  Receipt Date: 20081027
  Transmission Date: 20090506
  Serious: Yes (Disabling)
  Sender: FDA-Public Use
  Company Number: NL-TEVA-179533ISR

PATIENT
  Sex: Female
  Weight: 140 kg

DRUGS (4)
  1. FOLIC ACID [Suspect]
     Indication: PREGNANCY
     Dates: start: 19990101, end: 19990501
  2. CARBAMAZEPINE [Concomitant]
     Dates: start: 19800101
  3. CLOBAZAM [Concomitant]
  4. VALPROIC ACID [Concomitant]
     Dates: start: 19800101

REACTIONS (2)
  - ABORTION SPONTANEOUS [None]
  - EPILEPSY [None]
